FAERS Safety Report 18777849 (Version 1)
Quarter: 2021Q1

REPORT INFORMATION
  Report Type: Spontaneous
  Country: US (occurrence: US)
  Receive Date: 20210122
  Receipt Date: 20210122
  Transmission Date: 20210419
  Serious: No
  Sender: FDA-Public Use
  Company Number: 2020SGN03179

PATIENT
  Age: 55 Year
  Sex: Female

DRUGS (9)
  1. KANJINTI [Concomitant]
     Active Substance: TRASTUZUMAB-ANNS
     Indication: BREAST CANCER FEMALE
     Dosage: UNK
     Dates: start: 20200710
  2. TUKYSA [Suspect]
     Active Substance: TUCATINIB
     Indication: BREAST CANCER FEMALE
     Dosage: UNK
     Dates: start: 20200710
  3. TUKYSA [Suspect]
     Active Substance: TUCATINIB
     Dosage: 1 DF, BID
  4. TUKYSA [Suspect]
     Active Substance: TUCATINIB
     Dosage: 150 MG, UNK
  5. CAPECITABINE. [Concomitant]
     Active Substance: CAPECITABINE
     Dosage: 2 DF, BID
     Dates: start: 20200716
  6. TUKYSA [Suspect]
     Active Substance: TUCATINIB
     Dosage: 2 DF, BID
     Route: 048
     Dates: start: 20200720
  7. CAPECITABINE. [Concomitant]
     Active Substance: CAPECITABINE
     Indication: BREAST CANCER FEMALE
     Dosage: 2 DF, BID
  8. CAPECITABINE. [Concomitant]
     Active Substance: CAPECITABINE
     Dosage: 3 DF, BID
  9. CAPECITABINE. [Concomitant]
     Active Substance: CAPECITABINE
     Dosage: UNK
     Dates: start: 20200710

REACTIONS (17)
  - Chest discomfort [Recovered/Resolved]
  - Insomnia [Unknown]
  - Tenderness [Unknown]
  - Lacrimation increased [Unknown]
  - Erythema [Unknown]
  - Nausea [Unknown]
  - Acne [Unknown]
  - Feeling abnormal [Unknown]
  - Epistaxis [Unknown]
  - Product dose omission in error [Unknown]
  - Nasal congestion [Unknown]
  - Dizziness [Recovered/Resolved]
  - Libido decreased [Unknown]
  - Headache [Unknown]
  - Neuropathy peripheral [Unknown]
  - Arthralgia [Unknown]
  - Fatigue [Unknown]

NARRATIVE: CASE EVENT DATE: 20200816
